FAERS Safety Report 6740346-5 (Version None)
Quarter: 2010Q2

REPORT INFORMATION
  Report Type: 
  Country: None (occurrence: None)
  Receive Date: 20100525
  Receipt Date: 20100519
  Transmission Date: 20101027
  Serious: Yes (Hospitalization, Other)
  Sender: FDA-Public Use
  Company Number: US-BRISTOL-MYERS SQUIBB COMPANY-13266341

PATIENT
  Age: 73 Year
  Sex: Female

DRUGS (1)
  1. DASATINIB [Suspect]
     Indication: LEUKAEMIA
     Dosage: 12JAN-21JAN06=140(UNIT NOT SPECIFIED) 31JAN06-22JUN09=100 29JUL09-UNK=80
     Route: 048
     Dates: start: 20060112, end: 20090518

REACTIONS (2)
  - CARDIAC FAILURE CONGESTIVE [None]
  - PLEURAL EFFUSION [None]
